FAERS Safety Report 21043054 (Version 1)
Quarter: 2022Q3

REPORT INFORMATION
  Report Type: Spontaneous
  Country: US (occurrence: None)
  Receive Date: 20220702
  Receipt Date: 20220702
  Transmission Date: 20221026
  Serious: Yes (Death)
  Sender: FDA-Public Use
  Company Number: None

PATIENT
  Age: 90 Year
  Sex: Female

DRUGS (1)
  1. POMALYST [Suspect]
     Active Substance: POMALIDOMIDE
     Indication: Plasma cell myeloma
     Dosage: FREQUENCY : DAILY;?
     Route: 048
     Dates: start: 20220316, end: 20220518

REACTIONS (4)
  - Acute kidney injury [None]
  - Chronic kidney disease [None]
  - Cardiac failure congestive [None]
  - Plasma cell myeloma [None]

NARRATIVE: CASE EVENT DATE: 20220606
